FAERS Safety Report 4333820-2 (Version None)
Quarter: 2004Q2

REPORT INFORMATION
  Report Type: 
  Country: None (occurrence: None)
  Receive Date: 20040406
  Receipt Date: 20040406
  Transmission Date: 20050107
  Serious: Yes (Other)
  Sender: FDA-Public Use
  Company Number: None

PATIENT
  Age: 18 Year
  Sex: Female
  Weight: 50.3493 kg

DRUGS (1)
  1. ACETAMINOPHEN [Suspect]
     Indication: CONCUSSION
     Dosage: 2-500 MG 4-6 HRS/PR ORAL
     Route: 048
     Dates: start: 20040221, end: 20040306

REACTIONS (1)
  - MEDICATION ERROR [None]
